FAERS Safety Report 22250711 (Version 1)
Quarter: 2023Q2

REPORT INFORMATION
  Report Type: Spontaneous
  Country: US (occurrence: None)
  Receive Date: 20230424
  Receipt Date: 20230424
  Transmission Date: 20230722
  Serious: Yes (Other)
  Sender: FDA-Public Use
  Company Number: None

PATIENT
  Sex: Male
  Weight: 16.9 kg

DRUGS (1)
  1. NUSINERSEN [Suspect]
     Active Substance: NUSINERSEN
     Indication: Spinal muscular atrophy
     Dosage: OTHER FREQUENCY : EVERY 4 MONTHS;?
     Route: 037
     Dates: start: 20220502

REACTIONS (2)
  - Obsessive-compulsive disorder [None]
  - Loss of personal independence in daily activities [None]
